FAERS Safety Report 20991802 (Version 1)
Quarter: 2022Q2

REPORT INFORMATION
  Report Type: Spontaneous
  Country: US (occurrence: US)
  Receive Date: 20220622
  Receipt Date: 20220622
  Transmission Date: 20220720
  Serious: No
  Sender: FDA-Public Use
  Company Number: US-Accord-251037

PATIENT
  Sex: Male

DRUGS (1)
  1. CLONAZEPAM [Suspect]
     Active Substance: CLONAZEPAM
     Indication: Anxiety
     Dosage: DOSE: 1MG/TWICE A DAY (MORNING AND NIGHT)
     Route: 048
     Dates: start: 202111

REACTIONS (5)
  - Anxiety [Not Recovered/Not Resolved]
  - Benzodiazepine drug level abnormal [Unknown]
  - Off label use [Unknown]
  - Drug ineffective [Unknown]
  - Tremor [Not Recovered/Not Resolved]
